FAERS Safety Report 5867241-8 (Version None)
Quarter: 2008Q3

REPORT INFORMATION
  Report Type: 
  Country: None (occurrence: None)
  Receive Date: 20080902
  Receipt Date: 20080825
  Transmission Date: 20090109
  Serious: Yes (Life-Threatening, Hospitalization)
  Sender: FDA-Public Use
  Company Number: US-MERCK-0808USA02438

PATIENT
  Age: 78 Year
  Sex: Female
  Weight: 68 kg

DRUGS (8)
  1. JANUVIA [Suspect]
     Indication: TYPE 2 DIABETES MELLITUS
     Route: 048
     Dates: end: 20080811
  2. LANTUS [Concomitant]
     Indication: TYPE 2 DIABETES MELLITUS
     Route: 065
  3. LYRICA [Concomitant]
     Indication: NEUROPATHY PERIPHERAL
     Route: 065
  4. GLYBURIDE [Concomitant]
     Indication: TYPE 2 DIABETES MELLITUS
     Route: 065
  5. LISINOPRIL [Concomitant]
     Route: 065
  6. METOPROLOL [Concomitant]
     Indication: HYPERTENSION
     Route: 065
  7. LEVOTHROID [Concomitant]
     Indication: HYPOTHYROIDISM
     Route: 065
  8. VITAMINS (UNSPECIFIED) [Concomitant]
     Route: 065

REACTIONS (6)
  - ABDOMINAL PAIN [None]
  - BACTERAEMIA [None]
  - NAUSEA [None]
  - PANCREATITIS [None]
  - URINARY TRACT INFECTION [None]
  - VOMITING [None]
